FAERS Safety Report 4554381-9 (Version None)
Quarter: 2005Q1

REPORT INFORMATION
  Report Type: 
  Country: None (occurrence: None)
  Receive Date: 20050118
  Receipt Date: 20050110
  Transmission Date: 20050727
  Serious: Yes (Hospitalization)
  Sender: FDA-Public Use
  Company Number: PHRM2005FR00524

PATIENT
  Age: 93 Year
  Sex: Female

DRUGS (10)
  1. TAREG [Suspect]
     Indication: ESSENTIAL HYPERTENSION
     Dosage: 1 DF, QD
     Route: 048
     Dates: end: 20040925
  2. LASILIX [Suspect]
     Indication: ESSENTIAL HYPERTENSION
     Dosage: 40 MG, QD
     Route: 048
     Dates: end: 20040925
  3. PREVISCAN [Concomitant]
     Route: 048
  4. NITRIDERM TTS [Concomitant]
     Indication: ANGINA PECTORIS
     Dosage: 10 MG/DAY
     Route: 062
  5. CORDARONE [Concomitant]
     Indication: ARRHYTHMIA
     Dosage: 200 MG, QW3
     Route: 048
  6. OMEPRAZOLE [Concomitant]
     Dosage: 10 MG, QD
     Route: 048
  7. DURAGESIC [Concomitant]
     Route: 062
  8. DITROPAN [Concomitant]
     Route: 048
  9. INSULIN SUSPENSION, NPH [Concomitant]
  10. FURADANTIN [Concomitant]
     Route: 048

REACTIONS (7)
  - BLOOD CREATININE INCREASED [None]
  - DEHYDRATION [None]
  - FALL [None]
  - FRACTURE [None]
  - HYPOTENSION [None]
  - RENAL FAILURE [None]
  - SYNCOPE [None]
